FAERS Safety Report 14171815 (Version 4)
Quarter: 2019Q2

REPORT INFORMATION
  Report Type: Spontaneous
  Country: US (occurrence: US)
  Receive Date: 20171108
  Receipt Date: 20190617
  Transmission Date: 20190711
  Serious: No
  Sender: FDA-Public Use
  Company Number: US-SA-2017SA128473

PATIENT
  Age: 77 Year
  Sex: Female

DRUGS (4)
  1. TOUJEO [Suspect]
     Active Substance: INSULIN GLARGINE
     Dosage: 18 DF,QD
     Route: 051
     Dates: start: 20170615
  2. TOUJEO [Suspect]
     Active Substance: INSULIN GLARGINE
     Dosage: 16 U, QD
     Route: 065
  3. TOUJEO [Suspect]
     Active Substance: INSULIN GLARGINE
     Dosage: 16 DF,QD
     Route: 051
     Dates: start: 2017
  4. TOUJEO [Suspect]
     Active Substance: INSULIN GLARGINE
     Indication: TYPE 2 DIABETES MELLITUS
     Dosage: 10 DF,QD
     Route: 051

REACTIONS (4)
  - Blood pressure increased [Unknown]
  - Headache [Unknown]
  - Blood glucose increased [Recovering/Resolving]
  - Liquid product physical issue [Unknown]

NARRATIVE: CASE EVENT DATE: 2017
